FAERS Safety Report 4668010-7 (Version None)
Quarter: 2005Q2

REPORT INFORMATION
  Report Type: 
  Country: None (occurrence: None)
  Receive Date: 20050520
  Receipt Date: 20050510
  Transmission Date: 20051028
  Serious: Yes (Hospitalization, Other)
  Sender: FDA-Public Use
  Company Number: FR-ABBOTT-05P-056-0300225-00

PATIENT
  Age: 57 Year
  Sex: Male

DRUGS (6)
  1. DEPAKENE [Suspect]
     Indication: EPILEPSY
     Dates: end: 20010101
  2. DEPAKENE [Suspect]
     Route: 048
     Dates: start: 20050331, end: 20050405
  3. ACAMPROSATE [Suspect]
     Indication: ALCOHOLISM
     Route: 048
     Dates: start: 20050331, end: 20050403
  4. VITAMINS B1 B6 [Suspect]
     Indication: ALCOHOLISM
     Route: 048
     Dates: start: 20050331, end: 20050403
  5. DIAZEPAM [Suspect]
     Indication: ALCOHOLISM
     Route: 048
     Dates: start: 20050331, end: 20050402
  6. PHENOBARBITAL SODIUM [Concomitant]
     Indication: EPILEPSY
     Dates: start: 20010101

REACTIONS (10)
  - APRAXIA [None]
  - C-REACTIVE PROTEIN INCREASED [None]
  - CEREBRAL ATROPHY [None]
  - HEPATIC ENCEPHALOPATHY [None]
  - HEPATORENAL SYNDROME [None]
  - PROTHROMBIN TIME RATIO DECREASED [None]
  - PYREXIA [None]
  - RENAL FAILURE [None]
  - SEPSIS [None]
  - THROMBOCYTOPENIA [None]
